FAERS Safety Report 10701284 (Version 1)
Quarter: 2015Q1

REPORT INFORMATION
  Report Type: Spontaneous
  Country: US (occurrence: US)
  Receive Date: 20150109
  Receipt Date: 20150109
  Transmission Date: 20150721
  Serious: No
  Sender: FDA-Public Use
  Company Number: US-BRISTOL-MYERS SQUIBB COMPANY-BMS-2014-001686

PATIENT

DRUGS (1)
  1. ERBITUX [Suspect]
     Active Substance: CETUXIMAB
     Indication: ADVERSE EVENT
     Dosage: 400 MG/M2, UNK
     Route: 065

REACTIONS (1)
  - Adverse drug reaction [Unknown]
